FAERS Safety Report 21170299 (Version 1)
Quarter: 2022Q3

REPORT INFORMATION
  Report Type: Spontaneous
  Country: FR (occurrence: FR)
  Receive Date: 20220804
  Receipt Date: 20220804
  Transmission Date: 20221027
  Serious: Yes (Hospitalization)
  Sender: FDA-Public Use
  Company Number: None

PATIENT
  Age: 8 Year
  Sex: Male

DRUGS (2)
  1. RISPERDAL [Suspect]
     Active Substance: RISPERIDONE
     Indication: Autism spectrum disorder
     Dosage: UNKNOWN DOSAGE
     Route: 065
  2. PIMOZIDE [Suspect]
     Active Substance: PIMOZIDE
     Indication: Autism spectrum disorder
     Dosage: UNKNOWN DOSAGE
     Route: 065

REACTIONS (5)
  - Somnolence [Recovered/Resolved]
  - Product administration error [Recovered/Resolved]
  - Extra dose administered [Recovered/Resolved]
  - Hypotension [Recovered/Resolved]
  - Bradycardia [Recovered/Resolved]

NARRATIVE: CASE EVENT DATE: 20210121
